FAERS Safety Report 4448278-2 (Version None)
Quarter: 2004Q3

REPORT INFORMATION
  Report Type: 
  Country: None (occurrence: None)
  Receive Date: 20040913
  Receipt Date: 20040903
  Transmission Date: 20050211
  Serious: Yes (Life-Threatening, Hospitalization)
  Sender: FDA-Public Use
  Company Number: US-MERCK-0409USA00271

PATIENT
  Age: 70 Year
  Sex: Female

DRUGS (7)
  1. CLONIDINE [Concomitant]
     Route: 065
  2. LANOXIN [Concomitant]
     Route: 065
  3. NEXIUM [Concomitant]
     Route: 065
  4. LOPID [Concomitant]
     Route: 065
  5. LOPRESSOR [Concomitant]
     Route: 065
  6. VIOXX [Suspect]
     Indication: ARTHRITIS
     Route: 048
     Dates: start: 20040405, end: 20040801
  7. AMBIEN [Concomitant]
     Route: 065

REACTIONS (1)
  - HAEMORRHAGE [None]
